FAERS Safety Report 12978953 (Version 2)
Quarter: 2017Q2

REPORT INFORMATION
  Report Type: Spontaneous
  Country: US (occurrence: US)
  Receive Date: 20161128
  Receipt Date: 20170406
  Transmission Date: 20170830
  Serious: Yes (Other)
  Sender: FDA-Public Use
  Company Number: US-TEVA-715424ACC

PATIENT
  Age: 16 Year
  Sex: Female
  Weight: 52.21 kg

DRUGS (2)
  1. PARAGARD T 380A [Suspect]
     Active Substance: COPPER
     Indication: CONTRACEPTION
     Dates: start: 20160217, end: 20161013
  2. BIOTIN [Concomitant]
     Active Substance: BIOTIN

REACTIONS (2)
  - Device dislocation [Recovered/Resolved]
  - Coital bleeding [Unknown]

NARRATIVE: CASE EVENT DATE: 20160927
